FAERS Safety Report 13618684 (Version 1)
Quarter: 2017Q2

REPORT INFORMATION
  Report Type: Spontaneous
  Country: CA (occurrence: CA)
  Receive Date: 20170606
  Receipt Date: 20170606
  Transmission Date: 20170830
  Serious: Yes (Other)
  Sender: FDA-Public Use
  Company Number: CA-BAYER-2017-100038

PATIENT
  Sex: Male

DRUGS (1)
  1. CIPRO [Suspect]
     Active Substance: CIPROFLOXACIN HYDROCHLORIDE
     Indication: DIVERTICULITIS
     Dosage: DAILY DOSE 1000 MG
     Dates: start: 20170417, end: 201704

REACTIONS (6)
  - Monoplegia [None]
  - Tendonitis [Recovered/Resolved]
  - Product use in unapproved indication [None]
  - Pain in extremity [Recovered/Resolved]
  - Off label use [None]
  - Gait disturbance [Recovered/Resolved]

NARRATIVE: CASE EVENT DATE: 201704
